FAERS Safety Report 5284550-4 (Version None)
Quarter: 2007Q2

REPORT INFORMATION
  Report Type: 
  Country: None (occurrence: None)
  Receive Date: 20070403
  Receipt Date: 20070330
  Transmission Date: 20071010
  Serious: Yes (Hospitalization)
  Sender: FDA-Public Use
  Company Number: JP-JPN-A200701184

PATIENT
  Age: 12 Year
  Sex: Female
  Weight: 42 kg

DRUGS (5)
  1. RELENZA [Suspect]
     Indication: INFLUENZA
     Dosage: 10MG TWICE PER DAY
     Route: 055
     Dates: start: 20070316, end: 20070316
  2. CALONAL [Concomitant]
     Route: 065
  3. DASEN [Concomitant]
     Route: 048
  4. ASTOMIN [Concomitant]
     Route: 048
  5. MUCOSOLVAN [Concomitant]
     Route: 048

REACTIONS (10)
  - ABNORMAL BEHAVIOUR [None]
  - COUGH [None]
  - DECREASED APPETITE [None]
  - DIARRHOEA [None]
  - EYE LUXATION [None]
  - GAZE PALSY [None]
  - MUSCLE RIGIDITY [None]
  - PHARYNGOLARYNGEAL PAIN [None]
  - PRODUCTIVE COUGH [None]
  - SPEECH DISORDER [None]
